FAERS Safety Report 23843738 (Version 1)
Quarter: 2024Q2

REPORT INFORMATION
  Report Type: Report from Study
  Country: US (occurrence: US)
  Receive Date: 20240510
  Receipt Date: 20240510
  Transmission Date: 20240716
  Serious: Yes (Death, Hospitalization)
  Sender: FDA-Public Use
  Company Number: US-JNJFOC-20240509195

PATIENT
  Sex: Male

DRUGS (1)
  1. CARVYKTI [Suspect]
     Active Substance: CILTACABTAGENE AUTOLEUCEL
     Indication: Plasma cell myeloma
     Route: 065
     Dates: start: 202307

REACTIONS (8)
  - Headache [Fatal]
  - Chest pain [Fatal]
  - Oxygen saturation decreased [Fatal]
  - Organ failure [Fatal]
  - Neuropathy peripheral [Unknown]
  - Facial paralysis [Unknown]
  - Pyrexia [Unknown]
  - Irritability [Unknown]

NARRATIVE: CASE EVENT DATE: 20230101
